FAERS Safety Report 21043496 (Version 1)
Quarter: 2022Q3

REPORT INFORMATION
  Report Type: Spontaneous
  Country: US (occurrence: US)
  Receive Date: 20220705
  Receipt Date: 20220705
  Transmission Date: 20221027
  Serious: No
  Sender: FDA-Public Use
  Company Number: US-SAREPTA THERAPEUTICS INC.-SRP2021-001717

PATIENT
  Age: 27 Year
  Sex: Male
  Weight: 84.2 kg

DRUGS (16)
  1. EXONDYS 51 [Suspect]
     Active Substance: ETEPLIRSEN
     Indication: Duchenne muscular dystrophy
     Dosage: 2500 MILLIGRAM,WEEKLY
     Route: 042
     Dates: start: 20161230
  2. EPLERENONE [Concomitant]
     Active Substance: EPLERENONE
     Indication: Diuretic therapy
     Dosage: 25 MILLIGRAM, QD
     Route: 048
     Dates: start: 20141011
  3. EPLERENONE [Concomitant]
     Active Substance: EPLERENONE
     Indication: Duchenne muscular dystrophy
  4. LISINOPRIL [Concomitant]
     Active Substance: LISINOPRIL
     Indication: Product used for unknown indication
     Dosage: 20 MILLIGRAM, QD
     Route: 048
  5. METFORMIN HYDROCHLORIDE [Concomitant]
     Active Substance: METFORMIN HYDROCHLORIDE
     Indication: Product used for unknown indication
     Dosage: 2 TABLETS QAM, 1 TABLET QPM
  6. METOPROLOL TARTRATE [Concomitant]
     Active Substance: METOPROLOL TARTRATE
     Indication: Duchenne muscular dystrophy
     Dosage: 75 MILLIGRAM, QD
     Route: 048
  7. PROTONIX [Concomitant]
     Active Substance: PANTOPRAZOLE SODIUM
     Indication: Product used for unknown indication
     Dosage: 20 MILLIGRAM, QD
     Route: 048
  8. PREDNISONE [Concomitant]
     Active Substance: PREDNISONE
     Indication: Duchenne muscular dystrophy
     Dosage: 20 MILLIGRAM, QD
     Route: 048
     Dates: start: 20141010
  9. VITAMIN D NOS [Concomitant]
     Active Substance: VITAMIN D NOS
     Indication: Product used for unknown indication
     Dosage: 5000 INTERNATIONAL UNIT, QD
     Route: 048
  10. COENZYME Q10 [Concomitant]
     Active Substance: DIETARY SUPPLEMENT\UBIDECARENONE
     Indication: Product used for unknown indication
     Dosage: 100 MILLIGRAM, QD
     Route: 048
  11. TUMS [Concomitant]
     Active Substance: CALCIUM CARBONATE
     Indication: Product used for unknown indication
     Dosage: 1000 MILLIGRAM, QD
     Route: 048
  12. MINERALS\VITAMINS [Concomitant]
     Active Substance: MINERALS\VITAMINS
     Indication: Product used for unknown indication
     Dosage: 2 GUMMIES,DAILY
     Route: 048
  13. CITRULLINE [Concomitant]
     Active Substance: CITRULLINE
     Indication: Supplementation therapy
     Dosage: 1 SCOOP, DAILY
     Route: 048
  14. IDEBENONE [Concomitant]
     Active Substance: IDEBENONE
     Indication: Duchenne muscular dystrophy
     Dosage: 150 MILLIGRAM (2 TABLETS TID), DAILY
     Route: 048
  15. IDEBENONE [Concomitant]
     Active Substance: IDEBENONE
     Indication: Ataxia
  16. ENTRESTO [Concomitant]
     Active Substance: SACUBITRIL\VALSARTAN
     Indication: Duchenne muscular dystrophy
     Dosage: 25 MILLIGRAM, QD
     Route: 048
     Dates: start: 20210618

REACTIONS (5)
  - Headache [Recovered/Resolved]
  - Chest discomfort [Recovered/Resolved]
  - Dehydration [Recovered/Resolved]
  - Cough [Recovered/Resolved]
  - Flushing [Recovered/Resolved]

NARRATIVE: CASE EVENT DATE: 20211001
